FAERS Safety Report 10233943 (Version 2)
Quarter: 2014Q2

REPORT INFORMATION
  Report Type: Spontaneous
  Country: US (occurrence: US)
  Receive Date: 20140612
  Receipt Date: 20140612
  Transmission Date: 20141212
  Serious: Yes (Other)
  Sender: FDA-Public Use
  Company Number: US-ASTRAZENECA-2011SE56640

PATIENT
  Age: 54 Year
  Sex: Male

DRUGS (8)
  1. CAPRELSA [Suspect]
     Indication: THYROID CANCER
     Route: 048
     Dates: start: 20110912
  2. ASPRIN ADULT LOW STRENGTH [Concomitant]
     Route: 048
  3. CALCIUM 500 [Concomitant]
     Dosage: 500
     Route: 048
  4. IMODIUM A-D [Concomitant]
     Route: 048
  5. LEXAPRO [Concomitant]
     Route: 048
  6. SYNTHROID [Concomitant]
     Route: 048
  7. ZOCOR [Concomitant]
     Route: 048
  8. LOPRESSOR HCT [Concomitant]
     Route: 048

REACTIONS (5)
  - Pancreatitis [Recovered/Resolved]
  - Nervousness [Recovered/Resolved]
  - Stomatitis [Recovering/Resolving]
  - Diarrhoea [Not Recovered/Not Resolved]
  - Headache [Recovered/Resolved]
